FAERS Safety Report 14615009 (Version 1)
Quarter: 2018Q1

REPORT INFORMATION
  Report Type: Spontaneous
  Country: US (occurrence: US)
  Receive Date: 20180308
  Receipt Date: 20180308
  Transmission Date: 20180509
  Serious: Yes (Other)
  Sender: FDA-Public Use
  Company Number: US-PFIZER INC-2018093343

PATIENT
  Sex: Female

DRUGS (2)
  1. EFFEXOR [Suspect]
     Active Substance: VENLAFAXINE HYDROCHLORIDE
     Indication: DEPRESSION
     Dosage: 150 UNK, ONCE A DAY
     Route: 048
  2. EFFEXOR XR [Suspect]
     Active Substance: VENLAFAXINE HYDROCHLORIDE
     Dosage: 150 MG, DAILY

REACTIONS (7)
  - Drug withdrawal syndrome [Unknown]
  - Nausea [Recovered/Resolved]
  - Drug dependence [Unknown]
  - Paraesthesia [Not Recovered/Not Resolved]
  - Drug dose omission [Unknown]
  - Vertigo [Recovered/Resolved]
  - Balance disorder [Unknown]
